FAERS Safety Report 20719177 (Version 2)
Quarter: 2022Q2

REPORT INFORMATION
  Report Type: Spontaneous
  Country: US (occurrence: US)
  Receive Date: 20220418
  Receipt Date: 20220425
  Transmission Date: 20220720
  Serious: Yes (Other)
  Sender: FDA-Public Use
  Company Number: US-BAYER-2022A053500

PATIENT
  Age: 65 Year

DRUGS (2)
  1. BETASERON [Suspect]
     Active Substance: INTERFERON BETA-1B
     Dosage: UNK
  2. DEVICE [Suspect]
     Active Substance: DEVICE
     Dosage: UNK

REACTIONS (3)
  - Multiple sclerosis relapse [None]
  - Expired device used [None]
  - Product dose omission issue [None]
